FAERS Safety Report 23382732 (Version 3)
Quarter: 2024Q1

REPORT INFORMATION
  Report Type: Spontaneous
  Country: US (occurrence: US)
  Receive Date: 20240109
  Receipt Date: 20240206
  Transmission Date: 20240410
  Serious: Yes (Other)
  Sender: FDA-Public Use
  Company Number: US-PFIZER INC-PV202400001548

PATIENT
  Age: 83 Year
  Sex: Female

DRUGS (1)
  1. ZIRABEV [Suspect]
     Active Substance: BEVACIZUMAB-BVZR
     Indication: Brain oedema
     Dosage: UNK
     Dates: start: 20230601

REACTIONS (7)
  - Hip fracture [Unknown]
  - Fall [Unknown]
  - Dysphonia [Unknown]
  - Confusional state [Unknown]
  - Tremor [Unknown]
  - Cyanosis [Unknown]
  - Off label use [Unknown]
